FAERS Safety Report 4473010-6 (Version None)
Quarter: 2004Q4

REPORT INFORMATION
  Report Type: 
  Country: None (occurrence: None)
  Receive Date: 20041013
  Receipt Date: 20040827
  Transmission Date: 20050328
  Serious: Yes (Life-Threatening, Hospitalization, Other)
  Sender: FDA-Public Use
  Company Number: US-BRISTOL-MYERS SQUIBB COMPANY-12686150

PATIENT
  Age: 70 Year
  Sex: Female

DRUGS (5)
  1. ABILIFY [Suspect]
     Indication: DEMENTIA
     Dosage: DECREASED TO 5 MG/DAY ON 12-AUG-2004, THEN DISCONTINUED.
     Route: 048
     Dates: end: 20040822
  2. ABILIFY [Suspect]
     Indication: MAJOR DEPRESSION
     Dosage: DECREASED TO 5 MG/DAY ON 12-AUG-2004, THEN DISCONTINUED.
     Route: 048
     Dates: end: 20040822
  3. ABILIFY [Suspect]
     Indication: POST-TRAUMATIC STRESS DISORDER
     Dosage: DECREASED TO 5 MG/DAY ON 12-AUG-2004, THEN DISCONTINUED.
     Route: 048
     Dates: end: 20040822
  4. VALPROIC ACID [Concomitant]
  5. CELEXA [Concomitant]

REACTIONS (4)
  - BLOOD CREATINE PHOSPHOKINASE INCREASED [None]
  - MOBILITY DECREASED [None]
  - MUSCLE RIGIDITY [None]
  - TREMOR [None]
